FAERS Safety Report 5365139-5 (Version None)
Quarter: 2007Q2

REPORT INFORMATION
  Report Type: 
  Country: None (occurrence: None)
  Receive Date: 20070621
  Receipt Date: 20070615
  Transmission Date: 20071010
  Serious: Yes (Hospitalization)
  Sender: FDA-Public Use
  Company Number: US-BRISTOL-MYERS SQUIBB COMPANY-13816368

PATIENT
  Age: 57 Year
  Sex: Female

DRUGS (11)
  1. BUSPAR [Suspect]
     Route: 048
     Dates: start: 20030601, end: 20030601
  2. MOTRIN [Suspect]
     Route: 048
     Dates: start: 20030601, end: 20030601
  3. ULTRAM [Suspect]
     Route: 048
     Dates: start: 20030601, end: 20030601
  4. SOMA [Suspect]
     Route: 048
     Dates: start: 20030601, end: 20030601
  5. LORAZEPAM [Suspect]
     Route: 048
     Dates: start: 20030601, end: 20030601
  6. CLARITIN [Concomitant]
  7. NEURONTIN [Concomitant]
  8. CELEXA [Concomitant]
     Route: 048
  9. PHENAZOPYRIDINE HCL TAB [Concomitant]
     Route: 048
  10. DALMANE [Concomitant]
  11. POTASSIUM CHLORIDE [Concomitant]

REACTIONS (7)
  - MITRAL VALVE INCOMPETENCE [None]
  - MULTIPLE DRUG OVERDOSE [None]
  - PNEUMONIA STREPTOCOCCAL [None]
  - RESPIRATORY FAILURE [None]
  - SPUTUM CULTURE POSITIVE [None]
  - TRICUSPID VALVE INCOMPETENCE [None]
  - TROPONIN INCREASED [None]
